FAERS Safety Report 8438228-6 (Version None)
Quarter: 2012Q2

REPORT INFORMATION
  Report Type: 
  Country: None (occurrence: None)
  Receive Date: 20120614
  Receipt Date: 20120612
  Transmission Date: 20120825
  Serious: Yes (Life-Threatening, Hospitalization)
  Sender: FDA-Public Use
  Company Number: AR-B.I. PHARMACEUTICALS,INC./RIDGEFIELD-2012-RA-00156RA

PATIENT
  Age: 75 Year
  Sex: Female
  Weight: 78 kg

DRUGS (4)
  1. AMIODARONA [Concomitant]
     Indication: ATRIAL FIBRILLATION
     Dosage: 200 MG
     Route: 048
     Dates: start: 20090101, end: 20120610
  2. PRADAXA [Suspect]
     Indication: CEREBROVASCULAR ACCIDENT PROPHYLAXIS
     Dosage: 220 MG
     Route: 048
     Dates: start: 20110901, end: 20120610
  3. TELMISARTAN [Concomitant]
     Indication: HYPERTENSION
     Dosage: 80 MG
     Route: 048
     Dates: start: 20060101, end: 20120610
  4. AMLODIPINE [Concomitant]
     Indication: HYPERTENSION
     Dosage: 5 MG
     Route: 048
     Dates: start: 20040101, end: 20120610

REACTIONS (6)
  - HAEMATEMESIS [None]
  - SEPSIS [None]
  - SHOCK [None]
  - GASTRIC ULCER HAEMORRHAGE [None]
  - ABDOMINAL PAIN UPPER [None]
  - UPPER RESPIRATORY TRACT INFECTION [None]
